FAERS Safety Report 12154179 (Version 1)
Quarter: 2016Q1

REPORT INFORMATION
  Report Type: Spontaneous
  Country: US (occurrence: US)
  Receive Date: 20160307
  Receipt Date: 20160307
  Transmission Date: 20160526
  Serious: Yes (Hospitalization)
  Sender: FDA-Public Use
  Company Number: US-GLENMARK GENERICS (EUROPE) LTD-2015GMK020934

PATIENT

DRUGS (1)
  1. ZOLMITRIPTAN. [Suspect]
     Active Substance: ZOLMITRIPTAN
     Indication: MIGRAINE
     Dosage: 2.5 MG, OD
     Route: 048
     Dates: start: 20151120, end: 20151120

REACTIONS (2)
  - Product substitution issue [Unknown]
  - Serotonin syndrome [Recovered/Resolved]

NARRATIVE: CASE EVENT DATE: 20151120
